FAERS Safety Report 8380910-3 (Version None)
Quarter: 2012Q2

REPORT INFORMATION
  Report Type: 
  Country: None (occurrence: None)
  Receive Date: 20120523
  Receipt Date: 20120511
  Transmission Date: 20120825
  Serious: Yes (Hospitalization)
  Sender: FDA-Public Use
  Company Number: JP-MERCK-1205USA02664

PATIENT
  Age: 75 Year
  Sex: Female

DRUGS (5)
  1. PRAVASTATIN SODIUM [Concomitant]
     Indication: HYPERLIPIDAEMIA
     Route: 048
     Dates: start: 20060601, end: 20111201
  2. VITAMIN B12 [Concomitant]
     Indication: HYPOAESTHESIA
     Route: 048
     Dates: start: 20060601, end: 20111201
  3. KETOPROFEN [Concomitant]
     Indication: ANALGESIC THERAPY
     Route: 061
     Dates: start: 20060601, end: 20111201
  4. SHAKUYAKU-KANZO-TO [Concomitant]
     Indication: HYPOAESTHESIA
     Route: 048
     Dates: start: 20060601, end: 20111201
  5. FOSAMAX [Suspect]
     Indication: OSTEOPOROSIS
     Route: 048
     Dates: start: 20060601, end: 20111201

REACTIONS (1)
  - ATYPICAL FEMUR FRACTURE [None]
